FAERS Safety Report 6466283-1 (Version None)
Quarter: 2009Q4

REPORT INFORMATION
  Report Type: 
  Country: None (occurrence: None)
  Receive Date: 20091202
  Receipt Date: 20091125
  Transmission Date: 20100525
  Serious: Yes (Other)
  Sender: FDA-Public Use
  Company Number: PHEH2009US07667

PATIENT
  Sex: Male

DRUGS (6)
  1. EXJADE [Suspect]
     Indication: IRON OVERLOAD
     Dosage: 1500 MG DAILY
     Dates: start: 20060720, end: 20061206
  2. METOPROLOL TARTRATE [Concomitant]
     Dosage: 50 MG, QD
     Route: 048
  3. UROXATRAL [Concomitant]
     Dosage: 10 MG, QD
     Route: 048
  4. ANTARA (MICRONIZED) [Concomitant]
     Dosage: 130 MG, UNK
  5. BUFFERIN [Concomitant]
     Dosage: UNK
     Route: 048
  6. HYDREA [Concomitant]
     Dosage: 500 MG, UNK
     Route: 048
     Dates: start: 20051108, end: 20061023

REACTIONS (2)
  - AZOTAEMIA [None]
  - GOUT [None]
